FAERS Safety Report 11996076 (Version 1)
Quarter: 2016Q1

REPORT INFORMATION
  Report Type: Spontaneous
  Country: US (occurrence: US)
  Receive Date: 20160203
  Receipt Date: 20160203
  Transmission Date: 20160526
  Serious: Yes (Other)
  Sender: FDA-Public Use
  Company Number: US-ROXANE LABORATORIES, INC.-2016-RO-00210RO

PATIENT
  Age: 74 Year
  Sex: Female

DRUGS (1)
  1. CYCLOPHOSPHAMIDE. [Suspect]
     Active Substance: CYCLOPHOSPHAMIDE
     Indication: BREAST CANCER
     Dosage: 50 MG
     Route: 048
     Dates: start: 201510, end: 201512

REACTIONS (2)
  - Vomiting [Unknown]
  - Erythema nodosum [Not Recovered/Not Resolved]

NARRATIVE: CASE EVENT DATE: 201510
